FAERS Safety Report 14196351 (Version 7)
Quarter: 2018Q2

REPORT INFORMATION
  Report Type: Report from Study
  Country: BR (occurrence: BR)
  Receive Date: 20171116
  Receipt Date: 20180625
  Transmission Date: 20180711
  Serious: Yes (Life-Threatening, Hospitalization, Other)
  Sender: FDA-Public Use
  Company Number: PHHY2016BR115396

PATIENT
  Age: 65 Year
  Sex: Female
  Weight: 102 kg

DRUGS (7)
  1. AFINITOR [Suspect]
     Active Substance: EVEROLIMUS
     Indication: NEUROENDOCRINE TUMOUR
     Dosage: 10 MG, QD (ONCE DAILY)
     Route: 048
  2. CAPTOPRIL. [Concomitant]
     Active Substance: CAPTOPRIL
     Indication: HYPERTENSION
     Dosage: 50 MG, QD
     Route: 048
  3. SALINE [Concomitant]
     Active Substance: SODIUM CHLORIDE
     Indication: PRODUCT USED FOR UNKNOWN INDICATION
     Route: 065
  4. SANDOSTATIN LAR DEPOT [Suspect]
     Active Substance: OCTREOTIDE ACETATE
     Indication: NEUROENDOCRINE TUMOUR
     Dosage: 50 MG, QMO (EVERY 28 DAYS) (30 MG + 20 MG)
     Route: 030
     Dates: start: 20150101
  5. DIPYRONE [Concomitant]
     Active Substance: DIPYRONE
     Indication: PRODUCT USED FOR UNKNOWN INDICATION
     Route: 065
  6. SANDOSTATIN LAR DEPOT [Suspect]
     Active Substance: OCTREOTIDE ACETATE
     Dosage: 50 MG, QMO (ONCE A MONTH)
     Route: 030
  7. SANDOSTATIN LAR DEPOT [Suspect]
     Active Substance: OCTREOTIDE ACETATE
     Dosage: 40 MG, QMO (20 MG + 20 MG)
     Route: 030

REACTIONS (27)
  - Malaise [Unknown]
  - Eye disorder [Unknown]
  - Pain [Recovering/Resolving]
  - Metastasis [Unknown]
  - Weight decreased [Unknown]
  - Hernia [Unknown]
  - Nervousness [Unknown]
  - Choking [Recovering/Resolving]
  - Memory impairment [Unknown]
  - Agitation [Unknown]
  - Disuse syndrome [Unknown]
  - Joint swelling [Unknown]
  - Incorrect dose administered [Unknown]
  - Apparent death [Unknown]
  - Crying [Unknown]
  - Hypoaesthesia [Recovering/Resolving]
  - Malignant neoplasm progression [Unknown]
  - Head discomfort [Not Recovered/Not Resolved]
  - Dyspnoea [Recovering/Resolving]
  - Feeling hot [Not Recovered/Not Resolved]
  - Joint injury [Unknown]
  - Depression [Unknown]
  - Dizziness [Unknown]
  - Fall [Recovered/Resolved]
  - Arthralgia [Unknown]
  - Pyrexia [Unknown]
  - Drug ineffective [Unknown]

NARRATIVE: CASE EVENT DATE: 20180605
